FAERS Safety Report 7465775-6 (Version None)
Quarter: 2011Q2

REPORT INFORMATION
  Report Type: 
  Country: None (occurrence: None)
  Receive Date: 20110509
  Receipt Date: 20110429
  Transmission Date: 20111010
  Serious: Yes (Hospitalization)
  Sender: FDA-Public Use
  Company Number: US-GILEAD-E2B_00001237

PATIENT
  Sex: Male
  Weight: 146.8 kg

DRUGS (4)
  1. LETAIRIS [Suspect]
     Indication: PULMONARY ARTERIAL HYPERTENSION
     Dosage: 5MG PER DAY
     Route: 048
     Dates: start: 20110406
  2. FUROSEMIDE [Concomitant]
     Indication: FLUID RETENTION
     Dosage: 80MG PER DAY
     Route: 048
     Dates: start: 20110414
  3. TADALAFIL [Suspect]
     Indication: PULMONARY ARTERIAL HYPERTENSION
     Dosage: 20MG PER DAY
     Route: 048
     Dates: start: 20110406
  4. LISINOPRIL [Concomitant]
     Indication: HYPERTENSION
     Dosage: 10MG PER DAY
     Route: 048
     Dates: start: 20101101, end: 20110418

REACTIONS (2)
  - HYPOTENSION [None]
  - FLUID RETENTION [None]
